FAERS Safety Report 18901790 (Version 1)
Quarter: 2021Q1

REPORT INFORMATION
  Report Type: Spontaneous
  Country: US (occurrence: US)
  Receive Date: 20210217
  Receipt Date: 20210217
  Transmission Date: 20210420
  Serious: No
  Sender: FDA-Public Use
  Company Number: US-CIPLA LTD.-2021US00051

PATIENT

DRUGS (22)
  1. ASPIRIN [ACETYLSALICYLIC ACID] [Concomitant]
     Active Substance: ASPIRIN
     Indication: HAEMORRHAGE
     Dosage: 81 MILLIGRAM, PRN (AS NEEDED)
     Route: 065
  2. CALCIUM + VITAMIN D3 [Concomitant]
     Active Substance: CALCIUM CARBONATE\CHOLECALCIFEROL
     Indication: MINERAL SUPPLEMENTATION
     Dosage: 600 MG/800 IUD / ONCE DAILY, QD
     Route: 065
  3. DICLOFENAC [Suspect]
     Active Substance: DICLOFENAC
     Indication: MUSCULOSKELETAL DISCOMFORT
  4. DICLOFENAC [Suspect]
     Active Substance: DICLOFENAC
     Indication: GANGRENE
  5. IBUPROFEN. [Concomitant]
     Active Substance: IBUPROFEN
     Indication: MIGRAINE
     Dosage: 400 MILLIGRAM, PRN (AS NEEDED)
     Route: 065
     Dates: start: 20201107
  6. METHOCARBAMOL. [Concomitant]
     Active Substance: METHOCARBAMOL
     Indication: MUSCLE SPASMS
     Dosage: 500 MILLIGRAM, PRN (ONE TAB 3 TIMES AS NEEDED)
     Route: 065
     Dates: start: 20201121
  7. POTASSIUM CLORIDE 40 [Concomitant]
     Active Substance: POTASSIUM CHLORIDE
     Indication: BLOOD POTASSIUM DECREASED
     Dosage: 20 MILLIEQUIVALENT ER/DAILY
     Route: 065
     Dates: start: 20201011
  8. CALCIUM + VITAMIN D3 [Concomitant]
     Active Substance: CALCIUM CARBONATE\CHOLECALCIFEROL
     Indication: VITAMIN SUPPLEMENTATION
  9. HYDROCORTISONE. [Concomitant]
     Active Substance: HYDROCORTISONE
     Indication: PAIN
     Dosage: 40 MILLIGRAM, BID
     Route: 065
     Dates: start: 20201128
  10. DICLOFENAC [Suspect]
     Active Substance: DICLOFENAC
     Indication: OSTEOARTHRITIS
     Dosage: UNK
     Route: 065
     Dates: start: 20201231
  11. MYRBETRIQ [Concomitant]
     Active Substance: MIRABEGRON
     Indication: BLADDER DISORDER
     Dosage: 25 MILLIGRAM, QD
     Route: 065
     Dates: start: 20201015
  12. METOPROLOL SUCCINATE. [Concomitant]
     Active Substance: METOPROLOL SUCCINATE
     Indication: HYPERTENSION
     Dosage: 25 MILLIGRAM, QD
     Route: 065
     Dates: start: 20201212
  13. PROCHLORPERAZINE. [Concomitant]
     Active Substance: PROCHLORPERAZINE
     Indication: MIGRAINE
     Dosage: 10 MILLIGRAM, QID, ONE TAB EVERY 6HRS
     Route: 065
     Dates: start: 20201109
  14. ACETAMINOPHEN. [Concomitant]
     Active Substance: ACETAMINOPHEN
     Indication: MIGRAINE
     Dosage: 500 MILLIGRAM, PRN (AS NEEDED)
     Route: 065
     Dates: start: 20201107
  15. MAGNESIUM OXIDE. [Concomitant]
     Active Substance: MAGNESIUM OXIDE
     Indication: MINERAL SUPPLEMENTATION
     Dosage: UNK
     Route: 065
     Dates: start: 20200901
  16. FAMOTIDINE. [Concomitant]
     Active Substance: FAMOTIDINE
     Indication: GASTROOESOPHAGEAL REFLUX DISEASE
     Dosage: 40 MILLIGRAM, BID
     Route: 065
     Dates: start: 20201114
  17. CANDESARTAN HCT [Concomitant]
     Active Substance: CANDESARTAN CILEXETIL\HYDROCHLOROTHIAZIDE
     Indication: HYPERTENSION
     Dosage: 60/12.5 MG / ONE DAILY AT 6PM, QD
     Route: 065
     Dates: start: 20201212
  18. LORATADINE. [Concomitant]
     Active Substance: LORATADINE
     Indication: PRODUCT USED FOR UNKNOWN INDICATION
     Dosage: 10 MILLIGRAM, EVERY DAY
     Route: 065
     Dates: start: 20200312
  19. WAL DRYL [Concomitant]
     Indication: HEADACHE
     Dosage: 25 MILLIGRAM, QID, ONE TAB EVRY 6HRS
     Route: 065
     Dates: start: 20201109
  20. ONDANSETRON ODT [Concomitant]
     Active Substance: ONDANSETRON
     Indication: NAUSEA
     Dosage: 4 MILLIGRAM, TID, EVERY 8 HOURS
     Route: 065
  21. ONDANSETRON ODT [Concomitant]
     Active Substance: ONDANSETRON
     Indication: VOMITING
  22. VITAMINS NOS [Concomitant]
     Active Substance: VITAMINS
     Indication: VITAMIN SUPPLEMENTATION
     Dosage: 850 MG / DAILY
     Route: 065

REACTIONS (5)
  - Product use in unapproved indication [Unknown]
  - Expired product administered [Unknown]
  - Wrong technique in product usage process [Unknown]
  - Off label use [Unknown]
  - Therapeutic response unexpected [Unknown]

NARRATIVE: CASE EVENT DATE: 20201231
